FAERS Safety Report 21798477 (Version 1)
Quarter: 2022Q4

REPORT INFORMATION
  Report Type: Spontaneous
  Country: JP (occurrence: JP)
  Receive Date: 20221230
  Receipt Date: 20221230
  Transmission Date: 20230113
  Serious: Yes (Other)
  Sender: FDA-Public Use
  Company Number: JP-ALKEM LABORATORIES LIMITED-JP-ALKEM-2022-11831

PATIENT
  Age: 47 Year
  Sex: Male
  Weight: 129 kg

DRUGS (1)
  1. DABIGATRAN ETEXILATE MESYLATE [Suspect]
     Active Substance: DABIGATRAN ETEXILATE MESYLATE
     Indication: Anticoagulant therapy
     Dosage: 110 MILLIGRAM, BID (LOW DOSE TWICE DAILY)
     Route: 048

REACTIONS (1)
  - Haemorrhage intracranial [Unknown]
